FAERS Safety Report 9305809 (Version 2)
Quarter: 2013Q3

REPORT INFORMATION
  Report Type: Spontaneous
  Country: US (occurrence: US)
  Receive Date: 20130523
  Receipt Date: 20130729
  Transmission Date: 20140515
  Serious: Yes (Death)
  Sender: FDA-Public Use
  Company Number: US-PFIZER INC-2013156723

PATIENT
  Age: 58 Year
  Sex: Female

DRUGS (8)
  1. INLYTA [Suspect]
     Indication: RENAL CANCER
     Dosage: 5 MG, UNK
     Dates: start: 20130502
  2. TEMAZEPAM [Concomitant]
     Dosage: UNK
  3. BENADRYL [Concomitant]
     Dosage: UNK
  4. TRAMADOL HYDROCHLORIDE [Concomitant]
     Dosage: UNK
  5. CIPROFLOXACIN HYDROCHLORIDE [Concomitant]
     Dosage: UNK
  6. MEGESTROL ACETATE [Concomitant]
     Dosage: UNK
  7. PROCRIT [Concomitant]
     Dosage: UNK
  8. SYNTHROID [Concomitant]
     Dosage: UNK

REACTIONS (3)
  - Death [Fatal]
  - Stomatitis [Unknown]
  - Dysphonia [Unknown]
